FAERS Safety Report 10766641 (Version 4)
Quarter: 2015Q3

REPORT INFORMATION
  Report Type: Report from Study
  Country: FI (occurrence: FI)
  Receive Date: 20150205
  Receipt Date: 20150818
  Transmission Date: 20151125
  Serious: Yes (Disabling, Other)
  Sender: FDA-Public Use
  Company Number: PHHY2014FI038541

PATIENT
  Age: 56 Year
  Sex: Female

DRUGS (4)
  1. NORTRIPTYLINE [Concomitant]
     Active Substance: NORTRIPTYLINE
     Indication: BACK PAIN
     Route: 065
  2. LOSATRIX [Concomitant]
     Active Substance: LOSARTAN POTASSIUM
     Indication: HYPERTENSION
     Dosage: 1 DF, ONCE IN THE MORNING
     Route: 065
  3. GILENYA [Suspect]
     Active Substance: FINGOLIMOD HYDROCHLORIDE
     Indication: MULTIPLE SCLEROSIS
     Dosage: 0.5 MG, QD
     Route: 048
     Dates: start: 20140122
  4. CAPRILON [Concomitant]
     Indication: PRODUCT USED FOR UNKNOWN INDICATION
     Dosage: 2 DF, UNK
     Route: 065

REACTIONS (20)
  - Balance disorder [Not Recovered/Not Resolved]
  - Malaise [Recovered/Resolved]
  - Dysarthria [Recovered/Resolved]
  - Pyrexia [Recovered/Resolved]
  - Multiple sclerosis relapse [Recovered/Resolved]
  - Hypoaesthesia [Recovered/Resolved]
  - Dizziness [Not Recovered/Not Resolved]
  - Fatigue [Recovering/Resolving]
  - Feeling abnormal [Unknown]
  - Onychoclasis [Not Recovered/Not Resolved]
  - Hypotension [Recovered/Resolved]
  - Arthralgia [Recovering/Resolving]
  - Malaise [Recovered/Resolved]
  - Epistaxis [Recovered/Resolved]
  - Headache [Not Recovered/Not Resolved]
  - Multiple sclerosis relapse [Recovering/Resolving]
  - White blood cell count decreased [Unknown]
  - Arthralgia [Recovered/Resolved]
  - Pain [Recovering/Resolving]
  - Arthropathy [Recovering/Resolving]

NARRATIVE: CASE EVENT DATE: 201402
